FAERS Safety Report 18083776 (Version 1)
Quarter: 2020Q3

REPORT INFORMATION
  Report Type: Spontaneous
  Country: DE (occurrence: DE)
  Receive Date: 20200729
  Receipt Date: 20200729
  Transmission Date: 20201103
  Serious: No
  Sender: FDA-Public Use
  Company Number: DE-ALKEM LABORATORIES LIMITED-DE-ALKEM-2020-00177

PATIENT
  Age: 35 Year
  Sex: Female
  Weight: 75 kg

DRUGS (2)
  1. SPIRIVA RESPIMAT 2,5 MIKROGRAMM L?SUNG ZUR INHALATION [Concomitant]
     Indication: PRODUCT USED FOR UNKNOWN INDICATION
     Dosage: 2 X T?GLICH
     Route: 055
  2. CEFUROXIME AXETIL. [Suspect]
     Active Substance: CEFUROXIME AXETIL
     Indication: STREPTOCOCCAL URINARY TRACT INFECTION
     Dosage: 500 MILLIGRAM, BID
     Route: 048
     Dates: start: 20191015, end: 20191017

REACTIONS (3)
  - Skin swelling [Not Recovered/Not Resolved]
  - Rash [Not Recovered/Not Resolved]
  - Rash pruritic [Not Recovered/Not Resolved]

NARRATIVE: CASE EVENT DATE: 20191016
